FAERS Safety Report 6095445-0 (Version None)
Quarter: 2009Q1

REPORT INFORMATION
  Report Type: 
  Country: None (occurrence: None)
  Receive Date: 20090227
  Receipt Date: 20080519
  Transmission Date: 20090719
  Serious: Yes (Other)
  Sender: FDA-Public Use
  Company Number: A0718962A

PATIENT
  Age: 25 Year
  Sex: Female

DRUGS (2)
  1. LAMICTAL [Suspect]
     Indication: BIPOLAR DISORDER
     Dosage: 50MG PER DAY
     Route: 048
     Dates: start: 20080304, end: 20080328
  2. CLONAZEPAM [Concomitant]
     Dosage: .5MG TWICE PER DAY
     Route: 048

REACTIONS (1)
  - RASH [None]
